FAERS Safety Report 9147037 (Version 4)
Quarter: 2013Q2

REPORT INFORMATION
  Report Type: Report from Study
  Country: BE (occurrence: BE)
  Receive Date: 20130307
  Receipt Date: 20130520
  Transmission Date: 20140414
  Serious: Yes (Hospitalization)
  Sender: FDA-Public Use
  Company Number: BE-UCBSA-079373

PATIENT
  Age: 77 Year
  Sex: Female
  Weight: 68 kg

DRUGS (14)
  1. CERTOLIZUMAB PEGOL [Suspect]
     Indication: RHEUMATOID ARTHRITIS
     Dosage: NO OF DOSES RECEIVED: 20
     Route: 058
     Dates: start: 20120710
  2. DICLOFENAC [Suspect]
     Dates: start: 20120601, end: 20130226
  3. METHOTREXATE [Concomitant]
     Indication: RHEUMATOID ARTHRITIS
  4. EMCONCOR [Concomitant]
  5. BETAHISTINE [Concomitant]
  6. SIPRALEXA [Concomitant]
  7. CLOZAN [Concomitant]
  8. REDOMEX [Concomitant]
  9. LORMETAZEPAM [Concomitant]
  10. FOLIC ACID [Concomitant]
  11. STEOVIT [Concomitant]
  12. D-CURE [Concomitant]
  13. PREDNISOLONE [Concomitant]
  14. CONTRAMAL [Concomitant]

REACTIONS (1)
  - Gastrointestinal haemorrhage [Recovered/Resolved]
